FAERS Safety Report 10564442 (Version 1)
Quarter: 2014Q4

REPORT INFORMATION
  Report Type: Report from Study
  Country: US (occurrence: US)
  Receive Date: 20141104
  Receipt Date: 20141104
  Transmission Date: 20150529
  Serious: Yes (Death, Disabling)
  Sender: FDA-Public Use
  Company Number: US-ABBVIE-14K-163-1302823-00

PATIENT
  Age: 70 Year
  Sex: Male
  Weight: 86.26 kg

DRUGS (2)
  1. HUMIRA [Suspect]
     Active Substance: ADALIMUMAB
     Indication: RHEUMATOID ARTHRITIS
     Route: 058
  2. HUMIRA [Suspect]
     Active Substance: ADALIMUMAB
     Route: 058

REACTIONS (3)
  - Mental impairment [Not Recovered/Not Resolved]
  - Colon cancer [Fatal]
  - Rash vesicular [Recovered/Resolved]

NARRATIVE: CASE EVENT DATE: 201306
